FAERS Safety Report 5780227-7 (Version None)
Quarter: 2008Q2

REPORT INFORMATION
  Report Type: 
  Country: None (occurrence: None)
  Receive Date: 20080620
  Receipt Date: 20080609
  Transmission Date: 20081010
  Serious: Yes (Other)
  Sender: FDA-Public Use
  Company Number: PHBS2008CA04829

PATIENT
  Age: 34 Year
  Sex: Female

DRUGS (7)
  1. CARBAMAZEPINE [Suspect]
     Indication: EPILEPSY
     Dosage: UP TO 600 MG EVERY 8 H
  2. PHENYTOIN [Concomitant]
     Indication: EPILEPSY
     Dosage: 19 MG/KG, TOTAL DOSE 1200 MG FOLLOWED BY 100 MG/8H
  3. LORAZEPAM [Concomitant]
     Indication: EPILEPSY
  4. CLOBAZAM [Concomitant]
  5. PROFOL [Concomitant]
  6. RISPERDAL [Concomitant]
  7. TRAZODONE HCL [Concomitant]

REACTIONS (3)
  - ABORTION INDUCED [None]
  - CONVULSION [None]
  - DRUG EXPOSURE DURING PREGNANCY [None]
